FAERS Safety Report 8176512-4 (Version None)
Quarter: 2012Q1

REPORT INFORMATION
  Report Type: 
  Country: None (occurrence: None)
  Receive Date: 20120301
  Receipt Date: 20120224
  Transmission Date: 20120608
  Serious: Yes (Other)
  Sender: FDA-Public Use
  Company Number: BR-PFIZER INC-2012051080

PATIENT
  Age: 37 Year
  Sex: Female

DRUGS (2)
  1. HYDROCHLOROTHIAZIDE [Concomitant]
     Indication: DIURETIC THERAPY
     Dosage: 25 MG, 1X/DAY
  2. LEVONORGESTREL AND ETHINYL ESTRADIOL [Suspect]
     Indication: CONTRACEPTION
     Dosage: [LEVONORGESTREL 0.25MG] / [ETHINYL ESTRADIOL 0.05MG] (ONE TABLET) DAILY
     Route: 048
     Dates: start: 19980101

REACTIONS (3)
  - HYPERTENSION [None]
  - MENSTRUAL DISORDER [None]
  - MENSTRUATION DELAYED [None]
